FAERS Safety Report 7994203-7 (Version None)
Quarter: 2011Q4

REPORT INFORMATION
  Report Type: 
  Country: None (occurrence: None)
  Receive Date: 20111220
  Receipt Date: 20110404
  Transmission Date: 20120403
  Serious: No
  Sender: FDA-Public Use
  Company Number: US-GLAXOSMITHKLINE-A0922127A

PATIENT
  Age: 74 Year
  Sex: Male

DRUGS (7)
  1. RYTHMOL [Suspect]
     Indication: PRODUCT USED FOR UNKNOWN INDICATION
     Route: 048
  2. PROTONIX [Concomitant]
  3. MIRALAX [Concomitant]
  4. XANAX [Concomitant]
  5. PLAVIX [Concomitant]
  6. PRAVACHOL [Concomitant]
  7. ASPIRIN [Concomitant]

REACTIONS (2)
  - EXTRASYSTOLES [None]
  - FATIGUE [None]
